FAERS Safety Report 6094456-9 (Version None)
Quarter: 2009Q1

REPORT INFORMATION
  Report Type: 
  Country: None (occurrence: None)
  Receive Date: 20090226
  Receipt Date: 20090223
  Transmission Date: 20090719
  Serious: Yes (Death)
  Sender: FDA-Public Use
  Company Number: CH-BAYER-200914087GPV

PATIENT
  Age: 85 Year
  Sex: Male
  Weight: 56 kg

DRUGS (12)
  1. ASPIRIN [Suspect]
     Indication: DRUG USE FOR UNKNOWN INDICATION
     Dosage: TOTAL DAILY DOSE: 100 MG  UNIT DOSE: 100 MG
     Route: 048
     Dates: start: 20080919, end: 20080920
  2. LASIX [Suspect]
     Indication: DRUG USE FOR UNKNOWN INDICATION
     Dosage: TOTAL DAILY DOSE: 20 MG/ML
     Route: 040
     Dates: start: 20080918, end: 20080919
  3. FERINJECT [Suspect]
     Indication: IRON DEFICIENCY ANAEMIA
     Dosage: TOTAL DAILY DOSE: 500 MG
     Route: 042
     Dates: start: 20081119, end: 20081119
  4. FRAGMIN [Suspect]
     Indication: DRUG USE FOR UNKNOWN INDICATION
     Route: 058
     Dates: start: 20081118, end: 20081120
  5. NEBILET [Suspect]
     Indication: DRUG USE FOR UNKNOWN INDICATION
     Dosage: TOTAL DAILY DOSE: 5 MG
     Route: 048
     Dates: start: 20081119, end: 20081120
  6. DIOVAN [Suspect]
     Indication: DRUG USE FOR UNKNOWN INDICATION
     Dosage: TOTAL DAILY DOSE: 80 MG  UNIT DOSE: 80 MG
     Route: 048
     Dates: end: 20081007
  7. DIOVAN [Suspect]
     Dosage: UNIT DOSE: 80 MG
     Route: 048
     Dates: start: 20081008, end: 20081013
  8. DIOVAN [Suspect]
     Dosage: UNIT DOSE: 80 MG
     Route: 048
     Dates: start: 20081014, end: 20081104
  9. RECORMON [Concomitant]
     Indication: ANAEMIA OF CHRONIC DISEASE
     Route: 058
     Dates: start: 20081008, end: 20081120
  10. TEMESTA [Concomitant]
     Indication: DRUG USE FOR UNKNOWN INDICATION
     Dosage: TOTAL DAILY DOSE: 1 MG  UNIT DOSE: 1 MG
     Route: 048
     Dates: end: 20080920
  11. DILATREND [Concomitant]
     Indication: DRUG USE FOR UNKNOWN INDICATION
     Route: 065
  12. PREDNISOLONE [Concomitant]
     Indication: DRUG USE FOR UNKNOWN INDICATION
     Route: 055

REACTIONS (2)
  - HEPATIC FAILURE [None]
  - HEPATIC NECROSIS [None]
